FAERS Safety Report 11829400 (Version 1)
Quarter: 2015Q4

REPORT INFORMATION
  Report Type: Spontaneous
  Country: US (occurrence: US)
  Receive Date: 20151211
  Receipt Date: 20151211
  Transmission Date: 20160305
  Serious: No
  Sender: FDA-Public Use
  Company Number: US-BAUSCH-BL-2015-013459

PATIENT
  Sex: Female

DRUGS (1)
  1. XENAZINE [Suspect]
     Active Substance: TETRABENAZINE
     Indication: DYSKINESIA
     Route: 048
     Dates: start: 2015, end: 2015

REACTIONS (4)
  - Off label use [Unknown]
  - Somnolence [Unknown]
  - Gastric disorder [Unknown]
  - Bruxism [Unknown]

NARRATIVE: CASE EVENT DATE: 2015
